FAERS Safety Report 4815089-5 (Version None)
Quarter: 2005Q4

REPORT INFORMATION
  Report Type: 
  Country: None (occurrence: None)
  Receive Date: 20051026
  Receipt Date: 20051010
  Transmission Date: 20060501
  Serious: Yes (Other)
  Sender: FDA-Public Use
  Company Number: DE_051017171

PATIENT

DRUGS (3)
  1. ZYPREXA [Suspect]
  2. PROMETHAZIN (PROMETHAZINE HYDROCHLORIDE) [Concomitant]
  3. AMINEURIN (AMITRIPTYLINE HYDROCHLORIDE) [Concomitant]

REACTIONS (2)
  - DANDY-WALKER SYNDROME [None]
  - TRANSMISSION OF DRUG VIA SEMEN [None]
